FAERS Safety Report 13055941 (Version 2)
Quarter: 2017Q1

REPORT INFORMATION
  Report Type: Report from Study
  Country: US (occurrence: US)
  Receive Date: 20161222
  Receipt Date: 20170303
  Transmission Date: 20170428
  Serious: Yes (Hospitalization)
  Sender: FDA-Public Use
  Company Number: US-MYLANLABS-2016M1057427

PATIENT

DRUGS (5)
  1. CLOZAPINE. [Suspect]
     Active Substance: CLOZAPINE
     Indication: SCHIZOAFFECTIVE DISORDER
     Dosage: 250 MG, QD
     Route: 048
     Dates: start: 2016, end: 20161217
  2. ABILIFY [Concomitant]
     Active Substance: ARIPIPRAZOLE
     Indication: PRODUCT USED FOR UNKNOWN INDICATION
     Dosage: 10 MG, QD
  3. CLOZAPINE. [Suspect]
     Active Substance: CLOZAPINE
     Indication: HALLUCINATION, AUDITORY
     Dosage: 12.5 MG, BID
     Route: 048
     Dates: start: 20161121, end: 2016
  4. LITHIUM. [Concomitant]
     Active Substance: LITHIUM
     Indication: PRODUCT USED FOR UNKNOWN INDICATION
     Dosage: 900 MG, QD
  5. ABILIFY [Concomitant]
     Active Substance: ARIPIPRAZOLE
     Dosage: 5 MG, QD

REACTIONS (3)
  - Haematocrit decreased [Unknown]
  - Myocarditis [Recovered/Resolved]
  - Red blood cell count decreased [Unknown]

NARRATIVE: CASE EVENT DATE: 2016
